FAERS Safety Report 4542684-3 (Version None)
Quarter: 2004Q4

REPORT INFORMATION
  Report Type: 
  Country: None (occurrence: None)
  Receive Date: 20041230
  Receipt Date: 20041020
  Transmission Date: 20050328
  Serious: Yes (Life-Threatening, Hospitalization, Disabling)
  Sender: FDA-Public Use
  Company Number: DE-MERCK-0411DEU00181

PATIENT
  Age: 73 Year
  Sex: Female
  Weight: 89 kg

DRUGS (3)
  1. VIOXX [Suspect]
     Indication: LOCALISED OSTEOARTHRITIS
     Route: 048
     Dates: start: 20001001, end: 20040417
  2. VIOXX [Suspect]
     Route: 048
     Dates: start: 20040418, end: 20040520
  3. VIOXX [Suspect]
     Route: 048
     Dates: start: 20040521, end: 20041003

REACTIONS (7)
  - ABDOMINAL PAIN UPPER [None]
  - ATRIAL FIBRILLATION [None]
  - DYSPEPSIA [None]
  - DYSPNOEA [None]
  - PALPITATIONS [None]
  - TACHYARRHYTHMIA [None]
  - THERAPY NON-RESPONDER [None]
